FAERS Safety Report 4672642-X (Version None)
Quarter: 2005Q2

REPORT INFORMATION
  Report Type: 
  Country: None (occurrence: None)
  Receive Date: 20050524
  Receipt Date: 20050408
  Transmission Date: 20051028
  Serious: Yes (Other)
  Sender: FDA-Public Use
  Company Number: PHHO2005BR05814

PATIENT
  Age: 59 Year
  Sex: Female
  Weight: 75 kg

DRUGS (2)
  1. SPP  V SPP V HCTZ V PLACEBO [Suspect]
     Indication: ESSENTIAL HYPERTENSION
     Dosage: 75 MG, QD
     Route: 048
     Dates: start: 20050324, end: 20050406
  2. ESIDRIX [Suspect]
     Indication: ESSENTIAL HYPERTENSION
     Dosage: 12.5 MG, QD
     Route: 048
     Dates: start: 20050324, end: 20050406

REACTIONS (10)
  - AFFECTIVE DISORDER [None]
  - CEREBROVASCULAR ACCIDENT [None]
  - CRYING [None]
  - DELIRIUM [None]
  - DYSARTHRIA [None]
  - FEELING ABNORMAL [None]
  - MEMORY IMPAIRMENT [None]
  - MENTAL DISORDER [None]
  - MOVEMENT DISORDER [None]
  - PSYCHOTIC DISORDER [None]
